FAERS Safety Report 8246434 (Version 6)
Quarter: 2025Q4

REPORT INFORMATION
  Report Type: Spontaneous
  Country: EU (occurrence: EU)
  Receive Date: 20111110
  Receipt Date: 20251110
  Transmission Date: 20260118
  Serious: Yes (Death, Hospitalization, Other)
  Sender: ORGANON
  Company Number: None

PATIENT
  Age: 72 Year
  Sex: Female
  Weight: 103 kg

DRUGS (12)
  1. MIRTAZAPINE [Suspect]
     Active Substance: MIRTAZAPINE
     Indication: Schizoaffective disorder
     Dosage: 30 MG, QD
     Dates: start: 2011, end: 20111023
  2. MIRTAZAPINE [Suspect]
     Active Substance: MIRTAZAPINE
     Indication: Depression
  3. MIRTAZAPINE [Suspect]
     Active Substance: MIRTAZAPINE
     Indication: Schizoaffective disorder
     Dosage: 30 MILLIGRAM, QD
     Dates: start: 2011, end: 20111023
  4. ZELDOX [Suspect]
     Active Substance: ZIPRASIDONE
     Indication: Schizoaffective disorder
     Dosage: 80 MG, QD
     Dates: start: 2005, end: 20111023
  5. CIPRALEX [Suspect]
     Active Substance: ESCITALOPRAM OXALATE
     Indication: Schizoaffective disorder
     Dosage: 30 MG, QD (DAILY DOSE OF 1 TABLET IN THE MORNING AND 1.5 TABLET IN THE EVENING)
     Dates: start: 2005, end: 20111023
  6. LITHIUM CITRATE [Suspect]
     Active Substance: LITHIUM CITRATE
     Indication: Schizoaffective disorder
     Dosage: 1 DF (IN THE MORNING) DOSAGE: 1+0+0+1.5, STRENGTH: 6 MMOL LI+
     Dates: start: 2005, end: 20111023
  7. LITHIUM CITRATE [Suspect]
     Active Substance: LITHIUM CITRATE
     Dosage: 1.5 DOSAGE FORM, QPM
     Dates: end: 20111023
  8. FERROUS SULFATE [Concomitant]
     Active Substance: FERROUS SULFATE
     Indication: Product used for unknown indication
     Dosage: 100 MG QD (UPDATE (13JUN2012): DOSE 100)
     Route: 065
     Dates: end: 20111023
  9. ALPRAZOLAM [Concomitant]
     Active Substance: ALPRAZOLAM
     Indication: Product used for unknown indication
     Dosage: UPDATE (13JUN2012): DOSE 0.5
     Dates: end: 20111022
  10. AMLODIPINE [Concomitant]
     Active Substance: AMLODIPINE BESYLATE
     Indication: Product used for unknown indication
     Dosage: UNK
  11. FRAGMIN [Concomitant]
     Active Substance: DALTEPARIN SODIUM
     Indication: Product used for unknown indication
     Dosage: UNK
  12. BENDROFLUMETHIAZIDE\POTASSIUM CHLORIDE [Concomitant]
     Active Substance: BENDROFLUMETHIAZIDE\POTASSIUM CHLORIDE
     Indication: Product used for unknown indication
     Dosage: 1 DF, QD (UPDATE (13JUN2012): DOSE 1, CENTYL MED KALIUMCHLORID)
     Route: 065
     Dates: end: 20111023

REACTIONS (26)
  - Cardiac hypertrophy [Fatal]
  - Hyperventilation [Fatal]
  - Pyrexia [Fatal]
  - Dyspnoea [Fatal]
  - Rhabdomyolysis [Fatal]
  - Humerus fracture [Fatal]
  - Constipation [Fatal]
  - Lactic acidosis [Fatal]
  - Renal failure [Fatal]
  - Organ failure [Fatal]
  - Confusional state [Fatal]
  - Neuroleptic malignant syndrome [Fatal]
  - Fall [Fatal]
  - Lacunar infarction [Fatal]
  - Hepatic cirrhosis [Fatal]
  - Hypertension [Fatal]
  - Internal fixation of fracture [Fatal]
  - Urinary tract infection [Fatal]
  - Depressed level of consciousness [Fatal]
  - Liver disorder [Fatal]
  - Myoglobin blood increased [Fatal]
  - Hyperdynamic left ventricle [Fatal]
  - Acute kidney injury [Fatal]
  - Hepatic enzyme increased [Fatal]
  - Blood creatine phosphokinase increased [Fatal]
  - Off label use [Unknown]

NARRATIVE: CASE EVENT DATE: 20111021
